FAERS Safety Report 11066462 (Version 1)
Quarter: 2015Q2

REPORT INFORMATION
  Report Type: Spontaneous
  Country: GB (occurrence: None)
  Receive Date: 20150423
  Receipt Date: 20150423
  Transmission Date: 20150821
  Serious: Yes (Hospitalization, Other)
  Sender: FDA-Public Use
  Company Number: GB-ZYDUS-007695

PATIENT
  Sex: Female

DRUGS (1)
  1. MORPHINE (MORPHINE) [Suspect]
     Active Substance: MORPHINE
     Indication: PAIN
     Dosage: 10DAYS

REACTIONS (11)
  - Acute kidney injury [None]
  - Myoclonus [None]
  - Diarrhoea [None]
  - Vomiting [None]
  - Agitation [None]
  - Confusional state [None]
  - Dehydration [None]
  - Tachycardia [None]
  - Toxicity to various agents [None]
  - Hallucination, visual [None]
  - Fear [None]
